FAERS Safety Report 7363859-4 (Version None)
Quarter: 2011Q1

REPORT INFORMATION
  Report Type: 
  Country: None (occurrence: None)
  Receive Date: 20110321
  Receipt Date: 20110314
  Transmission Date: 20110831
  Serious: Yes (Other)
  Sender: FDA-Public Use
  Company Number: IE-PFIZER INC-2010137842

PATIENT
  Age: 5 Year
  Sex: Male

DRUGS (2)
  1. MOVIPREP [Concomitant]
     Dosage: 1 DF, 1X/DAY
  2. GENOTROPIN [Suspect]
     Indication: GROWTH HORMONE DEFICIENCY
     Dosage: 0.5 MG, 1X/DAY
     Route: 058
     Dates: start: 20101008

REACTIONS (1)
  - VOMITING [None]
